FAERS Safety Report 11013040 (Version 1)
Quarter: 2015Q2

REPORT INFORMATION
  Report Type: Spontaneous
  Country: GB (occurrence: None)
  Receive Date: 20150409
  Receipt Date: 20150409
  Transmission Date: 20150821
  Serious: Yes (Life-Threatening, Hospitalization)
  Sender: FDA-Public Use
  Company Number: ABR_01948_2015

PATIENT
  Age: 44 Year
  Sex: Female

DRUGS (1)
  1. GLIADEL [Suspect]
     Active Substance: CARMUSTINE
     Indication: MALIGNANT GLIOMA
     Dosage: 8 DF 1X INTRACEREBRAL
     Dates: start: 20141124, end: 20141126

REACTIONS (2)
  - Depressed level of consciousness [None]
  - Intracranial pressure increased [None]

NARRATIVE: CASE EVENT DATE: 201411
